FAERS Safety Report 9694766 (Version 1)
Quarter: 2013Q4

REPORT INFORMATION
  Report Type: Spontaneous
  Country: US (occurrence: US)
  Receive Date: 20131119
  Receipt Date: 20131119
  Transmission Date: 20140711
  Serious: No
  Sender: FDA-Public Use
  Company Number: US-BIOGENIDEC-2013BI110208

PATIENT
  Age: 36 Year
  Sex: Female

DRUGS (1)
  1. TYSABRI [Suspect]
     Indication: MULTIPLE SCLEROSIS
     Route: 042
     Dates: start: 20090213

REACTIONS (7)
  - Sinus operation [Recovered/Resolved]
  - Pain in extremity [Recovered/Resolved]
  - Sinus disorder [Recovered/Resolved]
  - Plantar fasciitis [Recovered/Resolved]
  - Foot operation [Unknown]
  - Sinusitis [Recovered/Resolved]
  - Malaise [Recovered/Resolved]
